FAERS Safety Report 24447123 (Version 4)
Quarter: 2024Q4

REPORT INFORMATION
  Report Type: Report from Study
  Country: US (occurrence: US)
  Receive Date: 20241016
  Receipt Date: 20241211
  Transmission Date: 20250115
  Serious: Yes (Other)
  Sender: ALEXION PHARMACEUTICALS
  Company Number: US-ALXN-202410USA009205US

PATIENT
  Weight: 53.515 kg

DRUGS (12)
  1. STRENSIQ [Suspect]
     Active Substance: ASFOTASE ALFA
     Indication: Hypophosphatasia
     Dosage: 80 MILLIGRAM, TIW
  2. STRENSIQ [Suspect]
     Active Substance: ASFOTASE ALFA
     Dosage: 80 MILLIGRAM, TIW
     Route: 058
  3. STRENSIQ [Suspect]
     Active Substance: ASFOTASE ALFA
     Dosage: 80 MILLIGRAM, TIW
  4. STRENSIQ [Suspect]
     Active Substance: ASFOTASE ALFA
     Dosage: 80 MILLIGRAM, TIW
     Route: 058
  5. STRENSIQ [Suspect]
     Active Substance: ASFOTASE ALFA
     Dosage: 28 MILLIGRAM, TIW
  6. STRENSIQ [Suspect]
     Active Substance: ASFOTASE ALFA
     Dosage: 28 MILLIGRAM, TIW
     Route: 058
  7. STRENSIQ [Suspect]
     Active Substance: ASFOTASE ALFA
     Dosage: 28 MILLIGRAM, TIW
  8. STRENSIQ [Suspect]
     Active Substance: ASFOTASE ALFA
     Dosage: 28 MILLIGRAM, TIW
     Route: 058
  9. VILAZODONE [Concomitant]
     Active Substance: VILAZODONE
     Route: 065
  10. VILAZODONE [Concomitant]
     Active Substance: VILAZODONE
     Route: 065
  11. RALOXIFENE [Concomitant]
     Active Substance: RALOXIFENE
     Route: 065
  12. RALOXIFENE [Concomitant]
     Active Substance: RALOXIFENE
     Route: 065

REACTIONS (8)
  - Bone density abnormal [Not Recovered/Not Resolved]
  - Back pain [Not Recovered/Not Resolved]
  - Blood folate decreased [Unknown]
  - Arthropod sting [Not Recovered/Not Resolved]
  - Osteoarthritis [Not Recovered/Not Resolved]
  - Arthralgia [Not Recovered/Not Resolved]
  - Fatigue [Unknown]
  - Osteoporosis [Unknown]
